FAERS Safety Report 6841608-3 (Version None)
Quarter: 2010Q3

REPORT INFORMATION
  Report Type: 
  Country: None (occurrence: None)
  Receive Date: 20100714
  Receipt Date: 20100630
  Transmission Date: 20110219
  Serious: Yes (Hospitalization, Disabling)
  Sender: FDA-Public Use
  Company Number: JP-PFIZER INC-2010072411

PATIENT
  Age: 47 Year
  Sex: Female

DRUGS (3)
  1. DEPO-MEDROL [Suspect]
     Indication: RETINAL VASCULITIS
     Dosage: 100 UNK, UNK
     Dates: start: 20070101, end: 20070101
  2. MEDROL [Suspect]
     Dosage: 5-10MG/DAY
     Route: 048
  3. CYCLOPHOSPHAMIDE [Suspect]
     Indication: MIXED CONNECTIVE TISSUE DISEASE
     Dosage: 100 MG, UNK
     Route: 048
     Dates: start: 20020101, end: 20080101

REACTIONS (3)
  - CYTOMEGALOVIRUS CHORIORETINITIS [None]
  - DRUG INEFFECTIVE [None]
  - VISUAL ACUITY REDUCED [None]
